FAERS Safety Report 25655318 (Version 1)
Quarter: 2025Q3

REPORT INFORMATION
  Report Type: Report from Study
  Country: US (occurrence: US)
  Receive Date: 20250807
  Receipt Date: 20250807
  Transmission Date: 20251021
  Serious: Yes (Hospitalization, Other)
  Sender: NOVARTIS
  Company Number: US-002147023-NVSC2025US091178

PATIENT
  Age: 74 Year
  Sex: Male

DRUGS (2)
  1. ILARIS [Suspect]
     Active Substance: CANAKINUMAB
     Indication: Pyrexia
     Dosage: 150 MG, OTHER (Q4W)
     Route: 058
     Dates: start: 20241212
  2. ILARIS [Suspect]
     Active Substance: CANAKINUMAB
     Dosage: 150 MG, OTHER (Q4W)
     Route: 058

REACTIONS (2)
  - Haematochezia [Unknown]
  - Pneumonia [Unknown]

NARRATIVE: CASE EVENT DATE: 20250501
